FAERS Safety Report 16929792 (Version 1)
Quarter: 2019Q4

REPORT INFORMATION
  Report Type: Spontaneous
  Country: US (occurrence: US)
  Receive Date: 20191017
  Receipt Date: 20191017
  Transmission Date: 20200122
  Serious: No
  Sender: FDA-Public Use
  Company Number: None

PATIENT
  Age: 55 Year
  Sex: Female

DRUGS (20)
  1. AMBIEN [Concomitant]
     Active Substance: ZOLPIDEM TARTRATE
  2. KLONOPIN [Concomitant]
     Active Substance: CLONAZEPAM
  3. OMEPRAZOLE. [Concomitant]
     Active Substance: OMEPRAZOLE
  4. ATORVASTATIN [Concomitant]
     Active Substance: ATORVASTATIN
  5. METHOTREXATE. [Concomitant]
     Active Substance: METHOTREXATE
  6. METOPROLOL. [Concomitant]
     Active Substance: METOPROLOL
  7. LISINOPRIL. [Concomitant]
     Active Substance: LISINOPRIL
  8. TRINTELLIX [Concomitant]
     Active Substance: VORTIOXETINE HYDROBROMIDE
  9. BIAXIN [Concomitant]
     Active Substance: CLARITHROMYCIN
  10. BUPROPION. [Concomitant]
     Active Substance: BUPROPION
  11. FUROSEMIDE. [Concomitant]
     Active Substance: FUROSEMIDE
  12. CLONAZEPAM. [Concomitant]
     Active Substance: CLONAZEPAM
  13. DIPHEN/ATROP [Concomitant]
     Active Substance: ATROPINE SULFATE\DIPHENOXYLATE
  14. PROMETHAZINE [Concomitant]
     Active Substance: PROMETHAZINE HYDROCHLORIDE
  15. TIZANIDINE. [Concomitant]
     Active Substance: TIZANIDINE
  16. STELARA [Suspect]
     Active Substance: USTEKINUMAB
     Indication: MULTIPLE SCLEROSIS
     Dosage: ?          OTHER FREQUENCY:EVERY 4 WEEKS;?
     Route: 058
  17. GABAPENTIN. [Concomitant]
     Active Substance: GABAPENTIN
  18. BREO ELLIPTA [Concomitant]
     Active Substance: FLUTICASONE FUROATE\VILANTEROL TRIFENATATE
  19. ZOLPIDEM [Concomitant]
     Active Substance: ZOLPIDEM TARTRATE
  20. OXYCODONE AND ACETAMINOPHEN [Concomitant]
     Active Substance: ACETAMINOPHEN\OXYCODONE HYDROCHLORIDE

REACTIONS (2)
  - Therapy cessation [None]
  - Herpes zoster [None]

NARRATIVE: CASE EVENT DATE: 20190802
